FAERS Safety Report 8721871 (Version 3)
Quarter: 2012Q4

REPORT INFORMATION
  Report Type: 
  Country: AU (occurrence: AU)
  Receive Date: 20120814
  Receipt Date: 20120904
  Transmission Date: 20130627
  Serious: Yes (Other)
  Sender: FDA-Public Use
  Company Number: PHHY2012AU069900

PATIENT
  Age: 5 None
  Sex: Female

DRUGS (4)
  1. AFINITOR [Suspect]
     Indication: ASTROCYTOMA
     Dosage: 2.5 mg, QD
     Route: 048
     Dates: start: 20110831, end: 20120807
  2. RISPERIDONE [Concomitant]
     Indication: AGGRESSION
     Dosage: 1.5-3 mg
     Route: 048
  3. FLUVOXAMINE [Concomitant]
     Indication: AGGRESSION
     Dosage: 50 mg, BID
     Route: 048
  4. MELATONIN [Concomitant]
     Indication: SLEEP DISORDER
     Dosage: 15 mg, nocte
     Route: 048

REACTIONS (6)
  - Intracranial pressure increased [Recovered/Resolved]
  - Neoplasm progression [Not Recovered/Not Resolved]
  - Malignant neoplasm progression [Not Recovered/Not Resolved]
  - Injury [Recovered/Resolved]
  - Impaired healing [Recovered/Resolved]
  - Infection [Recovered/Resolved]
